FAERS Safety Report 16178291 (Version 2)
Quarter: 2019Q2

REPORT INFORMATION
  Report Type: Report from Study
  Country: JP (occurrence: JP)
  Receive Date: 20190410
  Receipt Date: 20190416
  Transmission Date: 20190711
  Serious: Yes (Hospitalization)
  Sender: FDA-Public Use
  Company Number: JP-ROCHE-2104447

PATIENT
  Age: 7 Year
  Sex: Male

DRUGS (8)
  1. ONON [Concomitant]
     Active Substance: PRANLUKAST
     Route: 048
     Dates: start: 20180225
  2. CARBOCISTEINE [Concomitant]
     Active Substance: CARBOCYSTEINE
     Route: 048
     Dates: start: 20180225
  3. RITUXIMAB. [Suspect]
     Active Substance: RITUXIMAB
     Route: 042
     Dates: start: 20180315
  4. MYCOPHENOLATE MOFETIL. [Suspect]
     Active Substance: MYCOPHENOLATE MOFETIL
     Indication: NEPHROTIC SYNDROME
     Route: 048
     Dates: start: 20180404
  5. BAKTAR [Concomitant]
     Active Substance: SULFAMETHOXAZOLE\TRIMETHOPRIM
     Route: 048
     Dates: start: 20180302
  6. RITUXIMAB. [Suspect]
     Active Substance: RITUXIMAB
     Indication: NEPHROTIC SYNDROME
     Dosage: SUBSEQUENT SAME DOSE ON: 08/MAR/2018, 15/MAR/2018
     Route: 042
     Dates: start: 20180301
  7. RITUXIMAB. [Suspect]
     Active Substance: RITUXIMAB
     Dosage: SUBSEQUENT SAME DOSE ON: 08/MAR/2018, 15/MAR/2018
     Route: 042
     Dates: start: 20180329, end: 20180329
  8. RITUXIMAB. [Suspect]
     Active Substance: RITUXIMAB
     Route: 042
     Dates: start: 20180308

REACTIONS (2)
  - Influenza [Recovered/Resolved]
  - Lymphadenitis [Not Recovered/Not Resolved]

NARRATIVE: CASE EVENT DATE: 20180324
